FAERS Safety Report 7250457-6 (Version None)
Quarter: 2011Q1

REPORT INFORMATION
  Report Type: 
  Country: None (occurrence: None)
  Receive Date: 20110118
  Receipt Date: 20110107
  Transmission Date: 20110831
  Serious: Yes (Other)
  Sender: FDA-Public Use
  Company Number: 2010SP065588

PATIENT
  Age: 60 Year
  Sex: Female

DRUGS (6)
  1. METHYLPREDNISOLONE [Concomitant]
  2. TEICOPLANIN [Concomitant]
  3. LOW MOLECULAR WEIGHT HEPARIN [Concomitant]
  4. ORGARAN [Suspect]
     Indication: THROMBOTIC THROMBOCYTOPENIC PURPURA
     Dosage: 1250 IU; QD; IV, 2500 IU; QD; IV
     Route: 042
     Dates: start: 20090101, end: 20090101
  5. GRANULOCYTE COLONY STIMULATING FACTOR [Concomitant]
  6. ANTITHROMBIN III [Concomitant]

REACTIONS (4)
  - ETHANOL GELATION TEST POSITIVE [None]
  - CLOSTRIDIUM TEST POSITIVE [None]
  - PYREXIA [None]
  - DIARRHOEA [None]
